FAERS Safety Report 6243518-1 (Version None)
Quarter: 2009Q2

REPORT INFORMATION
  Report Type: 
  Country: None (occurrence: None)
  Receive Date: 20090624
  Receipt Date: 20090610
  Transmission Date: 20091009
  Serious: Yes (Other)
  Sender: FDA-Public Use
  Company Number: PHHY2009JP01525

PATIENT
  Sex: Male
  Weight: 76 kg

DRUGS (9)
  1. DIOVAN T30230+TAB+HY [Suspect]
     Indication: HYPERTENSION
     Dosage: 80 MG/DAY
     Route: 048
     Dates: start: 20071101, end: 20080116
  2. DIOVAN T30230+TAB+HY [Suspect]
     Dosage: 80 MG, BID
     Route: 048
     Dates: start: 20080117, end: 20080501
  3. DIOVAN T30230+TAB+HY [Suspect]
     Dosage: 80 MG, QD
     Route: 048
     Dates: end: 20080501
  4. AMLODIPINE [Concomitant]
     Indication: HYPERTENSION
     Dosage: 5 MG/DAY
     Route: 048
     Dates: start: 20080501
  5. EUGLUCON [Concomitant]
     Dosage: 5 MG/DAY
     Route: 048
     Dates: start: 20060518
  6. METFORMIN HCL [Concomitant]
     Dosage: 500 MG/DAY
     Route: 048
     Dates: start: 20061109
  7. SUNRYTHM [Concomitant]
     Dosage: 50 MG/DAY
     Route: 048
     Dates: start: 20051115
  8. DIGOXIN [Concomitant]
     Dosage: 0.125 MG/DAY
     Route: 048
     Dates: start: 20051115
  9. LIPITOR [Concomitant]
     Dosage: 10 MG/DAY
     Route: 048
     Dates: start: 20051213

REACTIONS (4)
  - BLOOD GLUCOSE INCREASED [None]
  - BLOOD TRIGLYCERIDES INCREASED [None]
  - GLUCOSE URINE PRESENT [None]
  - TOXIC SKIN ERUPTION [None]
